FAERS Safety Report 6713233-6 (Version None)
Quarter: 2010Q2

REPORT INFORMATION
  Report Type: 
  Country: None (occurrence: None)
  Receive Date: 20100506
  Receipt Date: 20100428
  Transmission Date: 20101027
  Serious: Yes (Hospitalization)
  Sender: FDA-Public Use
  Company Number: PHHO2010DE06500

PATIENT
  Sex: Female
  Weight: 93 kg

DRUGS (9)
  1. BLINDED ALISKIREN ALI+TAB+CF [Suspect]
     Dosage: CODE NOT BROKEN
     Route: 048
  2. BLINDED ENALAPRIL COMP-ENA+ [Suspect]
     Dosage: CODE NOT BROKEN
     Route: 048
  3. BLINDED NO TREATMENT RECEIVED NOMED [Suspect]
     Dosage: CODE NOT BROKEN
     Route: 048
  4. COMPARATOR ENALAPRIL [Suspect]
     Indication: CARDIAC FAILURE
     Dosage: UNK
     Route: 048
  5. ALISKIREN [Suspect]
     Indication: CARDIAC FAILURE
     Route: 048
  6. TORASEMIDE [Concomitant]
  7. EUTHROID [Concomitant]
  8. ASPIRIN [Concomitant]
  9. MAGNESIUM [Concomitant]

REACTIONS (3)
  - DISEASE PROGRESSION [None]
  - FALL [None]
  - VERTIGO [None]
